FAERS Safety Report 5204543-2 (Version None)
Quarter: 2007Q1

REPORT INFORMATION
  Report Type: 
  Country: None (occurrence: None)
  Receive Date: 20070110
  Receipt Date: 20060503
  Transmission Date: 20070707
  Serious: No
  Sender: FDA-Public Use
  Company Number: US-BRISTOL-MYERS SQUIBB COMPANY-13365457

PATIENT
  Age: 15 Year
  Sex: Male
  Weight: 64 kg

DRUGS (4)
  1. ABILIFY [Suspect]
  2. LEXAPRO [Concomitant]
  3. CONCERTA [Concomitant]
  4. LAMICTAL [Concomitant]

REACTIONS (1)
  - TARDIVE DYSKINESIA [None]
